FAERS Safety Report 5596800-5 (Version None)
Quarter: 2008Q1

REPORT INFORMATION
  Report Type: 
  Country: None (occurrence: None)
  Receive Date: 20080118
  Receipt Date: 20080108
  Transmission Date: 20080703
  Serious: Yes (Other)
  Sender: FDA-Public Use
  Company Number: US-PFIZER INC-2008003571

PATIENT
  Age: 66 Year
  Sex: Female

DRUGS (2)
  1. CHANTIX [Suspect]
     Indication: SMOKING CESSATION THERAPY
     Dates: start: 20070901, end: 20071101
  2. BEE VENOM, STANDARD [Suspect]
     Dates: start: 20071127, end: 20071127

REACTIONS (7)
  - ANAPHYLACTIC SHOCK [None]
  - ARTHROPOD STING [None]
  - BLOOD GLUCOSE INCREASED [None]
  - CRYING [None]
  - DEPRESSION [None]
  - MEMORY IMPAIRMENT [None]
  - WEIGHT INCREASED [None]
